FAERS Safety Report 7089357-3 (Version None)
Quarter: 2010Q4

REPORT INFORMATION
  Report Type: 
  Country: None (occurrence: None)
  Receive Date: 20101108
  Receipt Date: 20101027
  Transmission Date: 20110411
  Serious: Yes (Hospitalization)
  Sender: FDA-Public Use
  Company Number: US-ACTELION-A-NJ2010-39016

PATIENT

DRUGS (3)
  1. BOSENTAN TABLET 125 MG US [Suspect]
     Indication: PULMONARY ARTERIAL HYPERTENSION
     Dosage: 125 MG, BID
     Route: 048
     Dates: start: 20100428, end: 20100101
  2. BOSENTAN TABLET 125 MG US [Suspect]
     Dosage: 62.5 MG, BID
     Route: 048
     Dates: start: 20101001
  3. COUMADIN [Concomitant]

REACTIONS (5)
  - CARDIAC OPERATION [None]
  - CORONARY ARTERY BYPASS [None]
  - COX-MAZE PROCEDURE [None]
  - MITRAL VALVE REPLACEMENT [None]
  - TRICUSPID VALVE REPAIR [None]
